FAERS Safety Report 10004622 (Version 2)
Quarter: 2014Q1

REPORT INFORMATION
  Report Type: Spontaneous
  Country: US (occurrence: US)
  Receive Date: 20140312
  Receipt Date: 20140312
  Transmission Date: 20141002
  Serious: No
  Sender: FDA-Public Use
  Company Number: US-INCYTE CORPORATION-2014IN000188

PATIENT
  Age: 71 Year
  Sex: Male

DRUGS (9)
  1. JAKAFI [Suspect]
     Indication: MYELOFIBROSIS
     Dosage: 20 MG BID ALTERNATING WITH 20 MG QD ALTERNATE DAYS
     Route: 048
     Dates: start: 20131221
  2. JAKAFI [Suspect]
     Dosage: 5 MG, BID
     Route: 048
     Dates: start: 201401
  3. CENTRUM SILVER                     /02363801/ [Concomitant]
  4. ENALAPRIL HCT [Concomitant]
     Dosage: 10/25 MG TABLET
  5. AMLODIPINE BESILATE W/BENAZEPRIL HYDROCHLORID [Concomitant]
     Dosage: 10/20 MG
  6. LISINOPRIL AND HYDROCHLOROTHIAZIDE [Concomitant]
     Dosage: 20/12.5 MG TABLET
  7. MAGNESIUM [Concomitant]
     Dosage: 500 MG CAPSULE
  8. IBUPROFEN [Concomitant]
     Dosage: 200 MG CAPLET
  9. ASPIRIN [Concomitant]
     Dosage: 81 MG TABLET CHEW

REACTIONS (3)
  - White blood cell count increased [Unknown]
  - Platelet count decreased [Unknown]
  - Contusion [Unknown]
